FAERS Safety Report 9246380 (Version 2)
Quarter: 2013Q3

REPORT INFORMATION
  Report Type: Spontaneous
  Country: BR (occurrence: BR)
  Receive Date: 20130422
  Receipt Date: 20130920
  Transmission Date: 20140515
  Serious: Yes (Hospitalization, Other)
  Sender: FDA-Public Use
  Company Number: BR-ASTRAZENECA-2013SE24686

PATIENT
  Age: 43 Year
  Sex: Female
  Weight: 53 kg

DRUGS (4)
  1. NEXIUM [Suspect]
     Indication: GASTRITIS PROPHYLAXIS
     Route: 048
     Dates: start: 2011
  2. NOLVADEX D [Suspect]
     Indication: BREAST CANCER
     Route: 048
     Dates: start: 20130410, end: 201307
  3. NOLVADEX D [Suspect]
     Indication: BREAST CANCER
     Dosage: GENERIC
     Route: 048
     Dates: start: 201307, end: 201307
  4. NOLVADEX D [Suspect]
     Indication: BREAST CANCER
     Route: 048
     Dates: start: 201307

REACTIONS (8)
  - Breast cancer [Unknown]
  - Pain in extremity [Not Recovered/Not Resolved]
  - Migraine [Recovering/Resolving]
  - Menstrual disorder [Not Recovered/Not Resolved]
  - Vaginal haemorrhage [Not Recovered/Not Resolved]
  - Asthenia [Not Recovered/Not Resolved]
  - Dizziness [Not Recovered/Not Resolved]
  - Nausea [Not Recovered/Not Resolved]
